FAERS Safety Report 7633204-5 (Version None)
Quarter: 2011Q3

REPORT INFORMATION
  Report Type: 
  Country: None (occurrence: None)
  Receive Date: 20110725
  Receipt Date: 20110711
  Transmission Date: 20111222
  Serious: Yes (Hospitalization)
  Sender: FDA-Public Use
  Company Number: DE-ROCHE-780801

PATIENT
  Sex: Male
  Weight: 68 kg

DRUGS (11)
  1. BEVACIZUMAB [Suspect]
     Dosage: DAY 15 OF 1ST CYCLE
     Route: 042
     Dates: start: 20110420, end: 20110420
  2. BEVACIZUMAB [Suspect]
     Indication: METASTATIC RENAL CELL CARCINOMA
     Dosage: DAY 1 OF 1ST CYCLE, ACCORDING 10 MG/KG
     Route: 042
     Dates: start: 20110406, end: 20110406
  3. ZOMETA [Concomitant]
     Route: 042
     Dates: start: 20110228
  4. INTRON A [Concomitant]
     Dates: start: 20110404
  5. BEVACIZUMAB [Suspect]
     Dosage: DAY 1 OF 2ND CYCLE
     Route: 042
     Dates: start: 20110504, end: 20110504
  6. BEVACIZUMAB [Suspect]
     Dosage: DAY 15 OF 2ND CYCLE
     Route: 042
     Dates: start: 20110518, end: 20110518
  7. INTERFERON ALFA-2A [Suspect]
     Indication: METASTATIC RENAL CELL CARCINOMA
     Dosage: ON DAY 1,3,5,8,10,12,15,17,19,22,24,26 OF A CYCLE OF 4 WEEKS
     Route: 058
     Dates: start: 20110406, end: 20110529
  8. CORTICOSTEROID NOS [Concomitant]
     Route: 048
  9. TAVEGIL [Concomitant]
  10. NOVALGIN [Concomitant]
     Dosage: IF REQUIRED
     Dates: start: 20110404
  11. ACETAMINOPHEN [Suspect]
     Route: 065
     Dates: start: 20110406

REACTIONS (3)
  - HEPATOTOXICITY [None]
  - HEPATIC FAILURE [None]
  - RASH [None]
